FAERS Safety Report 7693145-4 (Version None)
Quarter: 2011Q3

REPORT INFORMATION
  Report Type: 
  Country: None (occurrence: None)
  Receive Date: 20110819
  Receipt Date: 20110816
  Transmission Date: 20111222
  Serious: Yes (Other)
  Sender: FDA-Public Use
  Company Number: US-PFIZER INC-2011189095

PATIENT
  Sex: Female
  Weight: 73.469 kg

DRUGS (4)
  1. VITAMIN TAB [Concomitant]
  2. PREMARIN [Suspect]
     Dosage: 0.625 MG, 1X/DAY
     Route: 048
     Dates: start: 19530301
  3. CALCIUM [Concomitant]
     Dosage: UNK
  4. PREMARIN [Suspect]
     Indication: HORMONE REPLACEMENT THERAPY
     Dosage: 0.325 MG, 1X/DAY

REACTIONS (3)
  - TRANSIENT ISCHAEMIC ATTACK [None]
  - ARTHRITIS [None]
  - HYPERTENSION [None]
